FAERS Safety Report 5079644-2 (Version None)
Quarter: 2006Q3

REPORT INFORMATION
  Report Type: 
  Country: None (occurrence: None)
  Receive Date: 20060814
  Receipt Date: 20060628
  Transmission Date: 20061208
  Serious: Yes (Hospitalization)
  Sender: FDA-Public Use
  Company Number: US-AMGEN-US184666

PATIENT
  Sex: Male

DRUGS (4)
  1. SENSIPAR [Suspect]
     Indication: HYPERPARATHYROIDISM SECONDARY
     Route: 048
     Dates: start: 20060421, end: 20060428
  2. METOCLOPRAMIDE [Concomitant]
     Dates: start: 20060411, end: 20060426
  3. NORVASC [Concomitant]
     Dates: start: 20060420, end: 20060510
  4. TOPROL-XL [Concomitant]
     Dates: start: 20060426, end: 20060526

REACTIONS (1)
  - DUODENAL ULCER HAEMORRHAGE [None]
